FAERS Safety Report 6217994-4 (Version None)
Quarter: 2009Q2

REPORT INFORMATION
  Report Type: 
  Country: None (occurrence: None)
  Receive Date: 20090608
  Receipt Date: 20090603
  Transmission Date: 20091009
  Serious: Yes (Hospitalization, Other)
  Sender: FDA-Public Use
  Company Number: US-JNJFOC-20080901971

PATIENT
  Sex: Female
  Weight: 72.67 kg

DRUGS (7)
  1. CISAPRIDE [Suspect]
     Route: 048
  2. CISAPRIDE [Suspect]
     Route: 048
  3. CISAPRIDE [Suspect]
     Indication: GASTROOESOPHAGEAL REFLUX DISEASE
     Route: 048
  4. PREVACID [Concomitant]
     Indication: GASTROOESOPHAGEAL REFLUX DISEASE
     Route: 065
  5. KLONOPIN [Concomitant]
     Indication: ANXIETY
     Route: 065
  6. FERROUS SULFATE TAB [Concomitant]
     Indication: HAEMOGLOBIN DECREASED
     Route: 065
  7. VICODIN [Concomitant]
     Route: 065

REACTIONS (4)
  - ABDOMINAL PAIN LOWER [None]
  - ELECTROCARDIOGRAM QT PROLONGED [None]
  - RESPIRATORY FAILURE [None]
  - UTERINE LEIOMYOMA [None]
